FAERS Safety Report 12835555 (Version 1)
Quarter: 2016Q4

REPORT INFORMATION
  Report Type: Report from Study
  Country: CA (occurrence: CA)
  Receive Date: 20161011
  Receipt Date: 20161011
  Transmission Date: 20170207
  Serious: Yes (Other)
  Sender: FDA-Public Use
  Company Number: CA-ROCHE-1837396

PATIENT
  Age: 55 Year
  Sex: Female

DRUGS (1)
  1. ACTEMRA [Suspect]
     Active Substance: TOCILIZUMAB
     Indication: RHEUMATOID ARTHRITIS
     Route: 058
     Dates: start: 2016, end: 20160924

REACTIONS (11)
  - Cystitis interstitial [Not Recovered/Not Resolved]
  - Vision blurred [Unknown]
  - Injection site swelling [Unknown]
  - Rhinorrhoea [Recovering/Resolving]
  - Fatigue [Not Recovered/Not Resolved]
  - Injection site reaction [Not Recovered/Not Resolved]
  - Injection site erythema [Unknown]
  - Swelling face [Unknown]
  - Dry eye [Unknown]
  - Sneezing [Recovered/Resolved]
  - Fatigue [Unknown]

NARRATIVE: CASE EVENT DATE: 2016
